FAERS Safety Report 7082214-8 (Version None)
Quarter: 2010Q4

REPORT INFORMATION
  Report Type: 
  Country: None (occurrence: None)
  Receive Date: 20101103
  Receipt Date: 20101015
  Transmission Date: 20110411
  Serious: Yes (Death)
  Sender: FDA-Public Use
  Company Number: PHHO2010CA15249

PATIENT
  Sex: Male
  Weight: 65.4 kg

DRUGS (1)
  1. STI571/CGP57148B T35717+TAB [Suspect]
     Indication: GASTROINTESTINAL STROMAL TUMOUR
     Dosage: 400 MG
     Route: 048
     Dates: start: 20100923

REACTIONS (1)
  - MULTI-ORGAN FAILURE [None]
